FAERS Safety Report 7145546-0 (Version None)
Quarter: 2010Q4

REPORT INFORMATION
  Report Type: 
  Country: None (occurrence: None)
  Receive Date: 20101208
  Receipt Date: 20101129
  Transmission Date: 20110411
  Serious: Yes (Hospitalization)
  Sender: FDA-Public Use
  Company Number: US-SANOFI-AVENTIS-200915948EU

PATIENT
  Age: 60 Year
  Sex: Female
  Weight: 70.3 kg

DRUGS (13)
  1. LASIX [Suspect]
     Dosage: DOSE AS USED: UNK
     Route: 048
     Dates: start: 19910101
  2. INVESTIGATIONAL DRUG [Suspect]
     Indication: RHEUMATOID ARTHRITIS
     Route: 048
     Dates: start: 20080122, end: 20090831
  3. INVESTIGATIONAL DRUG [Suspect]
     Route: 048
     Dates: start: 20090902, end: 20090916
  4. METOLAZONE [Suspect]
     Dosage: 2.5 MG 1X/DAY MON, WED AND FRI.
     Route: 065
  5. SPIRONOLACTONE [Suspect]
     Route: 065
  6. METHOTREXATE [Concomitant]
  7. FOLIC ACID [Concomitant]
  8. ADVAIR [Concomitant]
  9. CARVEDILOL [Concomitant]
  10. MONTELUKAST SODIUM [Concomitant]
  11. WARFARIN SODIUM [Concomitant]
  12. LORTAB [Concomitant]
  13. PREDNISONE [Concomitant]

REACTIONS (1)
  - RENAL FAILURE ACUTE [None]
